FAERS Safety Report 9168670 (Version 2)
Quarter: 2013Q2

REPORT INFORMATION
  Report Type: Spontaneous
  Country: US (occurrence: US)
  Receive Date: 20130314
  Receipt Date: 20130416
  Transmission Date: 20140414
  Serious: No
  Sender: FDA-Public Use
  Company Number: US-RB-050986-13

PATIENT
  Age: 30 Year
  Sex: Female

DRUGS (6)
  1. SUBOXONE FILM [Suspect]
     Indication: DRUG DEPENDENCE
     Dosage: SUBOXONE FILM
     Route: 060
     Dates: start: 2012, end: 201302
  2. SUBOXONE FILM [Suspect]
     Dosage: SUBOXONE FILM
     Route: 060
     Dates: start: 201302
  3. SUBOXONE TABLET [Suspect]
     Indication: DRUG DEPENDENCE
     Dosage: DOSING DETAILS UNKNOWN, INTERMITTENTLY
     Route: 060
     Dates: start: 2009, end: 2012
  4. KLONOPIN [Concomitant]
     Indication: AGORAPHOBIA
     Dosage: DOSING DETAILS UNKNOWN
     Route: 065
     Dates: start: 2003
  5. KLONOPIN [Concomitant]
     Indication: AGORAPHOBIA
     Dosage: DOSING DETAILS UNKNOWN
     Route: 065
     Dates: start: 2003
  6. XANAX [Concomitant]
     Indication: ANXIETY
     Dosage: DOSING DETAILS UNKNOWN
     Route: 065
     Dates: start: 2003

REACTIONS (5)
  - Feeling abnormal [Recovered/Resolved]
  - Substance abuse [Recovered/Resolved]
  - Malaise [Recovered/Resolved]
  - Pain in extremity [Recovered/Resolved]
  - Drug withdrawal syndrome [Recovered/Resolved]
